FAERS Safety Report 8306351-2 (Version None)
Quarter: 2012Q2

REPORT INFORMATION
  Report Type: 
  Country: None (occurrence: None)
  Receive Date: 20120423
  Receipt Date: 20120322
  Transmission Date: 20120825
  Serious: Yes (Hospitalization)
  Sender: FDA-Public Use
  Company Number: IE-BAXTER-2012BAX000666

PATIENT
  Sex: Female

DRUGS (15)
  1. METFORMIN HCL [Concomitant]
     Indication: TYPE 2 DIABETES MELLITUS
     Route: 048
  2. E45 CREAM [Concomitant]
     Route: 061
  3. OMEPRAZOLE [Concomitant]
     Route: 048
  4. COZAAR [Concomitant]
     Route: 048
  5. PARAFFIN SOLUTION [Concomitant]
     Route: 061
  6. BISOPROLOL FUMARATE [Concomitant]
     Route: 048
  7. TRAMADOL HYDROCHLORIDE [Concomitant]
     Route: 048
  8. CALCICHEW D3 FORTE [Concomitant]
     Route: 048
  9. BETNOVATE CREAM [Concomitant]
     Route: 061
  10. PREDNISOLONE [Concomitant]
     Route: 048
  11. SODIUM CHLORIDE INJECTION 0.9% W/V [Suspect]
     Indication: INFECTION
     Route: 042
     Dates: start: 20120320
  12. CEFTRIAXONE [Suspect]
     Indication: INFECTION
     Route: 042
     Dates: start: 20120320
  13. ALLOPURINOL [Concomitant]
     Route: 048
  14. AQUEOUS CREAM [Concomitant]
     Route: 061
  15. CETIRIZINE HCL [Concomitant]
     Route: 048

REACTIONS (5)
  - PALPITATIONS [None]
  - ARTHRALGIA [None]
  - FATIGUE [None]
  - HEART RATE IRREGULAR [None]
  - ASTHENIA [None]
